FAERS Safety Report 10213999 (Version 1)
Quarter: 2014Q2

REPORT INFORMATION
  Report Type: Spontaneous
  Country: GB (occurrence: GB)
  Receive Date: 20140603
  Receipt Date: 20140603
  Transmission Date: 20141212
  Serious: Yes (Disabling)
  Sender: FDA-Public Use
  Company Number: GB-WATSON-2014-11374

PATIENT
  Age: 6 Year
  Sex: Male

DRUGS (2)
  1. CLARITHROMYCIN (UNKNOWN) [Suspect]
     Indication: DERMATITIS
     Dosage: 125 MG, BID
     Route: 048
     Dates: start: 20131218, end: 20140228
  2. VENTOLIN                           /00139502/ [Concomitant]
     Indication: PRODUCT USED FOR UNKNOWN INDICATION
     Dosage: 100MCG/DOSE. 2 PUFFS FOUR TIMES DAILY AS REQUIRED.
     Route: 055

REACTIONS (4)
  - Social avoidant behaviour [Not Recovered/Not Resolved]
  - School refusal [Not Recovered/Not Resolved]
  - Tearfulness [Not Recovered/Not Resolved]
  - Abnormal behaviour [Not Recovered/Not Resolved]
